FAERS Safety Report 15948150 (Version 2)
Quarter: 2019Q3

REPORT INFORMATION
  Report Type: Report from Study
  Country: None (occurrence: DE)
  Receive Date: 20190212
  Receipt Date: 20190804
  Transmission Date: 20191004
  Serious: Yes (Disabling)
  Sender: FDA-Public Use
  Company Number: DE-ABBVIE-19K-062-2657136-00

PATIENT
  Age: 47 Year
  Sex: Male

DRUGS (5)
  1. HUMIRA [Suspect]
     Active Substance: ADALIMUMAB
     Indication: RHEUMATOID ARTHRITIS
     Route: 058
     Dates: start: 201108, end: 201208
  2. MTX [Concomitant]
     Active Substance: METHOTREXATE SODIUM
  3. MTX [Concomitant]
     Active Substance: METHOTREXATE SODIUM
     Dates: end: 2016
  4. MTX [Concomitant]
     Active Substance: METHOTREXATE SODIUM
     Dates: start: 2016
  5. MTX [Concomitant]
     Active Substance: METHOTREXATE SODIUM
     Indication: PRODUCT USED FOR UNKNOWN INDICATION
     Dates: start: 2010

REACTIONS (5)
  - Impaired healing [Unknown]
  - Aphthous ulcer [Unknown]
  - Diverticulitis [Unknown]
  - Musculoskeletal disorder [Unknown]
  - Food intolerance [Unknown]

NARRATIVE: CASE EVENT DATE: 20171115
